FAERS Safety Report 25883709 (Version 3)
Quarter: 2025Q4

REPORT INFORMATION
  Report Type: Spontaneous
  Country: US (occurrence: US)
  Receive Date: 20251006
  Receipt Date: 20251217
  Transmission Date: 20260117
  Serious: Yes (Hospitalization, Other)
  Sender: HIKMA
  Company Number: US-HIKMA PHARMACEUTICALS USA INC.-US-H14001-25-10702

PATIENT
  Sex: Male
  Weight: 104.31 kg

DRUGS (4)
  1. TESTOSTERONE CYPIONATE [Suspect]
     Active Substance: TESTOSTERONE CYPIONATE
     Dosage: 150 MILLIGRAM, WEEKLY (LOWERED)
     Route: 051
     Dates: end: 2025
  2. TESTOSTERONE CYPIONATE [Suspect]
     Active Substance: TESTOSTERONE CYPIONATE
     Indication: Hypogonadism male
     Dosage: 200 MILLIGRAM, WEEKLY
     Route: 051
     Dates: start: 2022
  3. TESTOSTERONE CYPIONATE [Suspect]
     Active Substance: TESTOSTERONE CYPIONATE
     Dosage: TAKEN OFF OF TESTOSTERONE FOR 8 MONTHS AND WAS GIVEN IT AGAIN AT A LOWER DOSE
     Route: 051
  4. VANTAS [Suspect]
     Active Substance: HISTRELIN ACETATE
     Indication: Gender reassignment therapy
     Dosage: BETWEEN 8:00-9:00 HOURS
     Route: 058
     Dates: start: 20220804

REACTIONS (23)
  - Psychotic disorder [Unknown]
  - Urine abnormality [Unknown]
  - Renal disorder [Unknown]
  - White blood cell count increased [Unknown]
  - Candida infection [Unknown]
  - Oral mucosal blistering [Unknown]
  - Scar [Unknown]
  - Rash [Unknown]
  - Hypoaesthesia [Unknown]
  - Blister [Unknown]
  - Skin lesion [Unknown]
  - Illness [Unknown]
  - Delusion [Unknown]
  - Aggression [Unknown]
  - Pain [Not Recovered/Not Resolved]
  - Eye haemorrhage [Unknown]
  - Renal function test abnormal [Not Recovered/Not Resolved]
  - Urinary hesitation [Not Recovered/Not Resolved]
  - Implant site nodule [Unknown]
  - Dysuria [Not Recovered/Not Resolved]
  - Gynaecomastia [Unknown]
  - Thrombosis [Unknown]
  - Therapy interrupted [Unknown]

NARRATIVE: CASE EVENT DATE: 20220101
